FAERS Safety Report 18109004 (Version 2)
Quarter: 2020Q3

REPORT INFORMATION
  Report Type: Spontaneous
  Country: US (occurrence: US)
  Receive Date: 20200804
  Receipt Date: 20200807
  Transmission Date: 20201103
  Serious: No
  Sender: FDA-Public Use
  Company Number: US-PFIZER INC-2020293394

PATIENT
  Age: 68 Year
  Sex: Female
  Weight: 120.66 kg

DRUGS (3)
  1. MORPHINE [Concomitant]
     Active Substance: MORPHINE
     Dosage: 1 MG
  2. HYDROCORTISONE. [Concomitant]
     Active Substance: HYDROCORTISONE
     Dosage: 10.325 MG
  3. IBRANCE [Suspect]
     Active Substance: PALBOCICLIB
     Indication: BREAST CANCER METASTATIC
     Dosage: 125 MG, CYCLIC (ONE TABLET DAILY FOR 21 DAYS, OFF FOR 7 DAYS)
     Route: 048
     Dates: end: 20200729

REACTIONS (2)
  - Loss of personal independence in daily activities [Unknown]
  - Circumstance or information capable of leading to medication error [Unknown]
